FAERS Safety Report 25960544 (Version 1)
Quarter: 2025Q4

REPORT INFORMATION
  Report Type: Spontaneous
  Country: CN (occurrence: CN)
  Receive Date: 20251027
  Receipt Date: 20251027
  Transmission Date: 20260118
  Serious: Yes (Hospitalization, Other)
  Sender: LEGACY PHARMACEUTICAL PACKAGING
  Company Number: CN-LEGACY PHARMA INC. SEZC-LGP202510-000303

PATIENT
  Age: 73 Year
  Sex: Male

DRUGS (12)
  1. ATROPINE SULFATE\DIFENOXIN HYDROCHLORIDE [Suspect]
     Active Substance: ATROPINE SULFATE\DIFENOXIN HYDROCHLORIDE
     Indication: Heart rate abnormal
     Dosage: 2 MILLIGRAM EVERY 10 MINUTES INITIALLY
     Route: 042
  2. ATROPINE SULFATE\DIFENOXIN HYDROCHLORIDE [Suspect]
     Active Substance: ATROPINE SULFATE\DIFENOXIN HYDROCHLORIDE
     Dosage: ESCALATION OF ATROPINE DOSING
     Route: 042
  3. ATROPINE SULFATE\DIFENOXIN HYDROCHLORIDE [Suspect]
     Active Substance: ATROPINE SULFATE\DIFENOXIN HYDROCHLORIDE
     Dosage: 10 MILLIGRAM EVERY 10 MINUTES INITIALLY, LATER TAPERED
     Route: 042
  4. ATROPINE SULFATE\DIFENOXIN HYDROCHLORIDE [Suspect]
     Active Substance: ATROPINE SULFATE\DIFENOXIN HYDROCHLORIDE
     Dosage: 2 MILLIGRAM, Q2H
     Route: 042
  5. ACTIVATED CHARCOAL [Concomitant]
     Active Substance: ACTIVATED CHARCOAL
     Indication: Toxicity to various agents
     Dosage: 50 GRAM, DIVIDED ORAL DOSES
     Route: 048
  6. Pralidoxime iodide [Concomitant]
     Indication: Toxicity to various agents
     Dosage: 0.8 GRAM, UNK
     Route: 065
  7. Pralidoxime iodide [Concomitant]
     Dosage: 2 GRAM, Q6H
     Route: 065
  8. Pralidoxime iodide [Concomitant]
     Dosage: DOSE WAS REDUCED
     Route: 065
  9. VITAMIN K1 [Concomitant]
     Active Substance: PHYTONADIONE
     Indication: Toxicity to various agents
     Dosage: 1 MILLIGRAM, BID
     Route: 065
  10. Hemcoagulase [Concomitant]
     Indication: Toxicity to various agents
     Dosage: UNKNOWN
     Route: 065
  11. PIPERACILLIN AND TAZOBACTAM [Concomitant]
     Active Substance: PIPERACILLIN SODIUM\TAZOBACTAM SODIUM
     Indication: Pneumonia aspiration
     Dosage: UNKNOWN
     Route: 065
  12. RIVAROXABAN [Concomitant]
     Active Substance: RIVAROXABAN
     Indication: Anticoagulant therapy
     Dosage: UNKNOWN
     Route: 065

REACTIONS (2)
  - Toxicity to various agents [Recovered/Resolved]
  - Product use in unapproved indication [Unknown]
